FAERS Safety Report 12527198 (Version 2)
Quarter: 2016Q3

REPORT INFORMATION
  Report Type: Report from Study
  Country: BR (occurrence: BR)
  Receive Date: 20160705
  Receipt Date: 20160719
  Transmission Date: 20161109
  Serious: Yes (Hospitalization, Other)
  Sender: FDA-Public Use
  Company Number: PHHY2016BR085097

PATIENT
  Sex: Female
  Weight: 58 kg

DRUGS (3)
  1. RANITIDINE. [Concomitant]
     Active Substance: RANITIDINE
     Indication: ABDOMINAL DISCOMFORT
     Dosage: 2 DF, QD (STARTED MANY YEARS AGO)
     Route: 048
  2. ACLASTA [Suspect]
     Active Substance: ZOLEDRONIC ACID
     Indication: OSTEOPOROSIS
     Dosage: 5 MG, Q12MO
     Route: 042
     Dates: start: 20160513
  3. DIPROSPAN [Suspect]
     Active Substance: BETAMETHASONE DIPROPIONATE\BETAMETHASONE SODIUM PHOSPHATE
     Indication: PAIN
     Dosage: 1 DF, UNK
     Route: 058
     Dates: start: 20160519

REACTIONS (15)
  - Weight decreased [Recovering/Resolving]
  - Pain [Recovering/Resolving]
  - Eye pain [Recovering/Resolving]
  - Peripheral swelling [Recovering/Resolving]
  - Joint swelling [Recovering/Resolving]
  - Malaise [Unknown]
  - Metabolic disorder [Unknown]
  - Musculoskeletal stiffness [Recovering/Resolving]
  - Nausea [Recovering/Resolving]
  - Neck pain [Recovering/Resolving]
  - Pain in extremity [Recovering/Resolving]
  - Fear [Recovering/Resolving]
  - Fatigue [Unknown]
  - Myalgia [Unknown]
  - Musculoskeletal chest pain [Unknown]
